FAERS Safety Report 6367669-6 (Version None)
Quarter: 2009Q3

REPORT INFORMATION
  Report Type: 
  Country: None (occurrence: None)
  Receive Date: 20090921
  Receipt Date: 20090909
  Transmission Date: 20100115
  Serious: Yes (Hospitalization)
  Sender: FDA-Public Use
  Company Number: BR-AVENTIS-200920366GDDC

PATIENT
  Age: 59 Year
  Sex: Male
  Weight: 62 kg

DRUGS (2)
  1. LANTUS [Suspect]
     Route: 058
     Dates: start: 20080501
  2. NOVORAPID [Concomitant]
     Route: 058

REACTIONS (4)
  - DIZZINESS [None]
  - HYPERGLYCAEMIA [None]
  - IMPAIRED HEALING [None]
  - VISION BLURRED [None]
